FAERS Safety Report 15554473 (Version 1)
Quarter: 2018Q4

REPORT INFORMATION
  Report Type: Spontaneous
  Country: US (occurrence: US)
  Receive Date: 20181026
  Receipt Date: 20181026
  Transmission Date: 20190205
  Serious: Yes (Disabling)
  Sender: FDA-Public Use
  Company Number: None

PATIENT
  Age: 24 Year
  Sex: Male
  Weight: 72 kg

DRUGS (4)
  1. DAILY VITAMINS ^ONE A DAY^ [Concomitant]
     Active Substance: VITAMINS
  2. VITAMIN D [Concomitant]
     Active Substance: CHOLECALCIFEROL
  3. FINASTERIDE. [Suspect]
     Active Substance: FINASTERIDE
     Indication: ALOPECIA
     Dosage: ?          QUANTITY:1 TABLET(S);?
     Route: 048
     Dates: start: 20180202, end: 20180930
  4. FISH OIL [Concomitant]
     Active Substance: FISH OIL

REACTIONS (11)
  - Anxiety [None]
  - Depression [None]
  - Mood swings [None]
  - Libido decreased [None]
  - Eye pain [None]
  - Suicidal ideation [None]
  - Nipple pain [None]
  - Tinnitus [None]
  - Erectile dysfunction [None]
  - Dry eye [None]
  - Feeling abnormal [None]

NARRATIVE: CASE EVENT DATE: 20181010
